FAERS Safety Report 6021134-4 (Version None)
Quarter: 2008Q4

REPORT INFORMATION
  Report Type: 
  Country: None (occurrence: None)
  Receive Date: 20081224
  Receipt Date: 20081224
  Transmission Date: 20090506
  Serious: Yes (Other)
  Sender: FDA-Public Use
  Company Number: None

PATIENT
  Age: 58 Year
  Sex: Male
  Weight: 82.55 kg

DRUGS (1)
  1. VARENICLINE [Suspect]
     Dates: start: 20080115

REACTIONS (1)
  - NO ADVERSE EVENT [None]
